FAERS Safety Report 8494397-3 (Version None)
Quarter: 2012Q3

REPORT INFORMATION
  Report Type: 
  Country: None (occurrence: None)
  Receive Date: 20120709
  Receipt Date: 20120621
  Transmission Date: 20120928
  Serious: No
  Sender: FDA-Public Use
  Company Number: US-ASTRAZENECA-2012SE35386

PATIENT
  Age: 48 Year
  Sex: Female

DRUGS (7)
  1. DIOVAN [Concomitant]
     Dates: start: 20101215
  2. INDERAL LA [Concomitant]
     Dates: start: 20101215
  3. VICODIN RS [Concomitant]
     Dosage: PRN
     Dates: start: 20101215
  4. FLUCONAZOLE [Concomitant]
     Dates: start: 20101215
  5. ALPRAZOLAM [Concomitant]
     Dates: start: 20101215
  6. METFORMIN HCL [Concomitant]
     Dates: start: 20101215
  7. NEXIUM [Suspect]
     Route: 048
     Dates: start: 20101215

REACTIONS (8)
  - OSTEOPOROSIS [None]
  - FIBULA FRACTURE [None]
  - FALL [None]
  - EXOSTOSIS [None]
  - STAPHYLOCOCCAL OSTEOMYELITIS [None]
  - MULTIPLE FRACTURES [None]
  - TIBIA FRACTURE [None]
  - PERIPHERAL ARTERIAL OCCLUSIVE DISEASE [None]
